FAERS Safety Report 7070131-9 (Version None)
Quarter: 2010Q4

REPORT INFORMATION
  Report Type: 
  Country: None (occurrence: None)
  Receive Date: 20101028
  Receipt Date: 20100910
  Transmission Date: 20110411
  Serious: No
  Sender: FDA-Public Use
  Company Number: US-WYE-H17498610

PATIENT
  Sex: Female
  Weight: 54.48 kg

DRUGS (3)
  1. EFFEXOR [Suspect]
     Indication: DEPRESSION
     Dates: start: 20090101, end: 20100101
  2. FENTANYL [Concomitant]
  3. ALPRAZOLAM [Concomitant]

REACTIONS (1)
  - NAUSEA [None]
